FAERS Safety Report 15885688 (Version 1)
Quarter: 2019Q1

REPORT INFORMATION
  Report Type: Spontaneous
  Country: CH (occurrence: CH)
  Receive Date: 20190129
  Receipt Date: 20190129
  Transmission Date: 20190417
  Serious: Yes (Hospitalization)
  Sender: FDA-Public Use
  Company Number: CH-ASTRAZENECA-2019SE13358

PATIENT
  Age: 81 Year
  Sex: Male

DRUGS (11)
  1. HEPARIN [Suspect]
     Active Substance: HEPARIN SODIUM
     Route: 065
     Dates: start: 20181114, end: 20181122
  2. AMLODIPINE [Suspect]
     Active Substance: AMLODIPINE BESYLATE
     Dosage: 5.0MG UNKNOWN
     Route: 065
  3. PARACETAMOL [Suspect]
     Active Substance: ACETAMINOPHEN
     Dosage: 1.0G UNKNOWN
     Route: 065
     Dates: start: 20181209, end: 20181213
  4. PARACETAMOL [Suspect]
     Active Substance: ACETAMINOPHEN
     Dosage: 1.0G UNKNOWN
     Route: 065
     Dates: start: 20181113, end: 20181127
  5. ATORVASTATIN [Suspect]
     Active Substance: ATORVASTATIN
     Dosage: 20.0MG UNKNOWN
     Route: 065
     Dates: start: 20181112, end: 20181209
  6. VITAMIN D [Concomitant]
     Active Substance: CHOLECALCIFEROL
     Dosage: 2000.0IU UNKNOWN
  7. KEFZOL [Suspect]
     Active Substance: CEFAZOLIN SODIUM
     Dosage: 13.11. UND 20.11.18
     Route: 065
  8. CRESTOR [Suspect]
     Active Substance: ROSUVASTATIN CALCIUM
     Dosage: 10.0MG UNKNOWN
     Route: 048
     Dates: end: 20181112
  9. MARCOUMAR [Suspect]
     Active Substance: PHENPROCOUMON
     Route: 065
  10. VITAMIN B12 [Concomitant]
     Active Substance: CYANOCOBALAMIN
  11. NOVALGIN (METAMIZOLE SODIUM) [Concomitant]
     Active Substance: METAMIZOLE SODIUM

REACTIONS (1)
  - Hepatitis cholestatic [Not Recovered/Not Resolved]
